FAERS Safety Report 6959586-5 (Version None)
Quarter: 2010Q3

REPORT INFORMATION
  Report Type: 
  Country: None (occurrence: None)
  Receive Date: 20100830
  Receipt Date: 20100816
  Transmission Date: 20110219
  Serious: Yes (Hospitalization, Other)
  Sender: FDA-Public Use
  Company Number: 008964

PATIENT
  Sex: Female
  Weight: 127 kg

DRUGS (9)
  1. LACOSAMIDE [Suspect]
     Indication: EPILEPSY
     Dosage: (350 MG BID ORAL)
     Route: 048
  2. CELLCEPT [Concomitant]
  3. BUSPAR [Concomitant]
  4. HYDROXYCHLOROQUINE [Concomitant]
  5. VAGIFEM [Concomitant]
  6. CENTRUM SILVER /01292501/ [Concomitant]
  7. CHILDREN'S TYLENOL COLD + FLU [Concomitant]
  8. ASPIRIN [Concomitant]
  9. PREDNISONE [Concomitant]

REACTIONS (12)
  - ACTIVATED PARTIAL THROMBOPLASTIN TIME PROLONGED [None]
  - BLOOD PHOSPHORUS INCREASED [None]
  - BLOOD PRESSURE INCREASED [None]
  - CHEST DISCOMFORT [None]
  - DYSPNOEA EXERTIONAL [None]
  - FATIGUE [None]
  - HEADACHE [None]
  - LYMPHOCYTE COUNT DECREASED [None]
  - PLATELET COUNT DECREASED [None]
  - SENSATION OF HEAVINESS [None]
  - TRANSIENT ISCHAEMIC ATTACK [None]
  - WHITE BLOOD CELL COUNT DECREASED [None]
